APPROVED DRUG PRODUCT: LOSARTAN POTASSIUM
Active Ingredient: LOSARTAN POTASSIUM
Strength: 25MG
Dosage Form/Route: TABLET;ORAL
Application: A203030 | Product #001 | TE Code: AB
Applicant: UNICHEM LABORATORIES LTD
Approved: Oct 14, 2015 | RLD: No | RS: No | Type: RX